FAERS Safety Report 9102541 (Version 2)
Quarter: 2013Q1

REPORT INFORMATION
  Report Type: Spontaneous
  Country: US (occurrence: US)
  Receive Date: 20130220
  Receipt Date: 20130321
  Transmission Date: 20140127
  Serious: Yes (Hospitalization, Other)
  Sender: FDA-Public Use
  Company Number: US-TEVA-387283USA

PATIENT
  Sex: Male

DRUGS (1)
  1. PROGLYCEM [Suspect]
     Indication: HYPERINSULINISM
     Dates: start: 20121212, end: 20121226

REACTIONS (2)
  - Pulmonary hypertension [Recovered/Resolved with Sequelae]
  - Cardiac failure congestive [Recovered/Resolved with Sequelae]
